FAERS Safety Report 14210156 (Version 3)
Quarter: 2017Q4

REPORT INFORMATION
  Report Type: Report from Study
  Country: DE (occurrence: DE)
  Receive Date: 20171121
  Receipt Date: 20171212
  Transmission Date: 20180321
  Serious: Yes (Death, Hospitalization)
  Sender: FDA-Public Use
  Company Number: DE-PURDUE-GBR-2017-0050638

PATIENT
  Age: 46 Year
  Sex: Female

DRUGS (17)
  1. SUBSTITOL [Suspect]
     Active Substance: MORPHINE SULFATE
     Dosage: 800 MG, UNK
     Route: 048
     Dates: start: 20170919, end: 20170919
  2. TRUVADA [Concomitant]
     Active Substance: EMTRICITABINE\TENOFOVIR DISOPROXIL FUMARATE
  3. SUBSTITOL [Suspect]
     Active Substance: MORPHINE SULFATE
     Dosage: 860 MG, UNK
     Route: 048
     Dates: start: 20170920, end: 20170920
  4. NORVIR [Concomitant]
     Active Substance: RITONAVIR
  5. HEPA-MERZ                          /01390204/ [Concomitant]
  6. SUBSTITOL [Suspect]
     Active Substance: MORPHINE SULFATE
     Dosage: 500 MG, UNK
     Route: 048
     Dates: start: 20170914, end: 20170914
  7. ISOFLURAN [Concomitant]
     Active Substance: ISOFLURANE
  8. SUBSTITOL [Suspect]
     Active Substance: MORPHINE SULFATE
     Indication: PRODUCT SUBSTITUTION
     Dosage: 900 MG, DAILY
     Route: 048
     Dates: start: 20170921, end: 20170921
  9. SUBSTITOL [Suspect]
     Active Substance: MORPHINE SULFATE
     Dosage: 760 MG, UNK
     Route: 048
     Dates: start: 20170918, end: 20170918
  10. SUBSTITOL [Suspect]
     Active Substance: MORPHINE SULFATE
     Dosage: 600 MG, UNK
     Route: 048
     Dates: start: 20170915, end: 20170915
  11. SIGRAXAN [Concomitant]
  12. SUBSTITOL [Suspect]
     Active Substance: MORPHINE SULFATE
     Dosage: 300 MG, UNK
     Route: 048
     Dates: start: 20170913, end: 20170913
  13. MEROPENEM. [Concomitant]
     Active Substance: MEROPENEM
  14. SUBSTITOL [Suspect]
     Active Substance: MORPHINE SULFATE
     Dosage: 700 MG, UNK
     Route: 048
     Dates: start: 20170917, end: 20170917
  15. SUBSTITOL [Suspect]
     Active Substance: MORPHINE SULFATE
     Dosage: 660 MG, UNK
     Route: 048
     Dates: start: 20170916, end: 20170916
  16. CIPROFLOXACIN. [Concomitant]
     Active Substance: CIPROFLOXACIN
  17. PREZISTA [Concomitant]
     Active Substance: DARUNAVIR ETHANOLATE

REACTIONS (1)
  - Pneumonia [Fatal]

NARRATIVE: CASE EVENT DATE: 20171015
